FAERS Safety Report 13393560 (Version 1)
Quarter: 2017Q1

REPORT INFORMATION
  Report Type: Spontaneous
  Country: IT (occurrence: IT)
  Receive Date: 20170331
  Receipt Date: 20170331
  Transmission Date: 20170429
  Serious: Yes (Other)
  Sender: FDA-Public Use
  Company Number: IT-MYLANLABS-2017M1019738

PATIENT

DRUGS (2)
  1. EXEMESTANE. [Suspect]
     Active Substance: EXEMESTANE
     Indication: BREAST CANCER MALE
     Dosage: 25MG DAILY
     Route: 065
     Dates: start: 201405, end: 201409
  2. EVEROLIMUS [Suspect]
     Active Substance: EVEROLIMUS
     Indication: BREAST CANCER MALE
     Dosage: 10MG DAILY
     Route: 065
     Dates: start: 201405, end: 201409

REACTIONS (2)
  - Pneumonitis [Recovering/Resolving]
  - Off label use [Unknown]
